FAERS Safety Report 6410755-2 (Version None)
Quarter: 2009Q4

REPORT INFORMATION
  Report Type: 
  Country: None (occurrence: None)
  Receive Date: 20091020
  Receipt Date: 20091020
  Transmission Date: 20100525
  Serious: No
  Sender: FDA-Public Use
  Company Number: None

PATIENT
  Age: 38 Year
  Sex: Female

DRUGS (2)
  1. AZITHROMYCIN [Suspect]
     Dates: start: 20070823, end: 20070828
  2. CEPHALEXIN [Suspect]
     Dates: start: 20070813, end: 20070823

REACTIONS (9)
  - AUTOIMMUNE HEPATITIS [None]
  - HEPATIC FIBROSIS [None]
  - HEPATIC NECROSIS [None]
  - HEPATITIS CHOLESTATIC [None]
  - HEPATOMEGALY [None]
  - LIVER INJURY [None]
  - RENAL FAILURE ACUTE [None]
  - SPLENOMEGALY [None]
  - TUBULOINTERSTITIAL NEPHRITIS [None]
